FAERS Safety Report 5496112-4 (Version None)
Quarter: 2007Q4

REPORT INFORMATION
  Report Type: 
  Country: None (occurrence: None)
  Receive Date: 20071025
  Receipt Date: 20070126
  Transmission Date: 20080405
  Serious: No
  Sender: FDA-Public Use
  Company Number: A0637185A

PATIENT
  Age: 45 Year
  Sex: Female

DRUGS (6)
  1. ADVAIR DISKUS 100/50 [Suspect]
     Indication: ASTHMA
     Route: 055
     Dates: start: 20010101
  2. SINGULAIR [Concomitant]
  3. ALBUTEROL [Concomitant]
  4. FLONASE [Concomitant]
  5. ALLEGRA [Concomitant]
  6. CLARITIN D-24 [Concomitant]

REACTIONS (4)
  - COUGH [None]
  - IMPATIENCE [None]
  - IRRITABILITY [None]
  - RESPIRATORY TRACT INFECTION [None]
